FAERS Safety Report 22105725 (Version 1)
Quarter: 2023Q1

REPORT INFORMATION
  Report Type: Spontaneous
  Country: GB (occurrence: GB)
  Receive Date: 20230317
  Receipt Date: 20230317
  Transmission Date: 20230418
  Serious: Yes (Other)
  Sender: FDA-Public Use
  Company Number: GB-JNJFOC-20230330556

PATIENT
  Age: 35 Year
  Sex: Male
  Weight: 77 kg

DRUGS (1)
  1. IBUPROFEN [Suspect]
     Active Substance: IBUPROFEN
     Indication: Ill-defined disorder
     Route: 065
     Dates: start: 20230310

REACTIONS (1)
  - Eye swelling [Recovered/Resolved]

NARRATIVE: CASE EVENT DATE: 20230310
